FAERS Safety Report 15930160 (Version 1)
Quarter: 2019Q1

REPORT INFORMATION
  Report Type: Spontaneous
  Country: FR (occurrence: FR)
  Receive Date: 20190206
  Receipt Date: 20190206
  Transmission Date: 20190417
  Serious: Yes (Hospitalization)
  Sender: FDA-Public Use
  Company Number: FR-ASTRAZENECA-2019SE19773

PATIENT
  Age: 63 Year
  Sex: Male
  Weight: 95 kg

DRUGS (16)
  1. CRESTOR [Concomitant]
     Active Substance: ROSUVASTATIN CALCIUM
  2. DIFFU K [Concomitant]
     Active Substance: POTASSIUM CHLORIDE
  3. AMLOR [Concomitant]
     Active Substance: AMLODIPINE BESYLATE
  4. HYPERIUM [Concomitant]
     Active Substance: RILMENIDINE PHOSPHATE
  5. ESOMEPRAZOLE. [Concomitant]
     Active Substance: ESOMEPRAZOLE MAGNESIUM
  6. XATRAL [Concomitant]
     Active Substance: ALFUZOSIN
  7. LANTUS [Suspect]
     Active Substance: INSULIN GLARGINE
     Indication: TYPE 2 DIABETES MELLITUS
     Dosage: LE SOIR
     Route: 058
     Dates: end: 20141209
  8. ZYLORIC [Concomitant]
     Active Substance: ALLOPURINOL
  9. STAGID [Suspect]
     Active Substance: METFORMIN PAMOATE
     Indication: TYPE 2 DIABETES MELLITUS
     Route: 048
  10. CORGARD [Concomitant]
     Active Substance: NADOLOL
  11. PLAVIX [Concomitant]
     Active Substance: CLOPIDOGREL BISULFATE
  12. BYETTA [Suspect]
     Active Substance: EXENATIDE
     Indication: TYPE 2 DIABETES MELLITUS
     Route: 058
  13. EUPRESSYL [Concomitant]
     Active Substance: URAPIDIL
  14. ALDACTONE [Concomitant]
     Active Substance: SPIRONOLACTONE
  15. LASILIX [Concomitant]
     Active Substance: FUROSEMIDE
  16. NOVONORM [Suspect]
     Active Substance: REPAGLINIDE
     Indication: TYPE 2 DIABETES MELLITUS
     Route: 048

REACTIONS (2)
  - Hypoglycaemia [Recovered/Resolved]
  - Epilepsy [Recovered/Resolved]

NARRATIVE: CASE EVENT DATE: 20141128
